FAERS Safety Report 25898264 (Version 2)
Quarter: 2025Q4

REPORT INFORMATION
  Report Type: Report from Study
  Country: EU (occurrence: EU)
  Receive Date: 20251008
  Receipt Date: 20251011
  Transmission Date: 20260118
  Serious: No
  Sender: ABBVIE
  Company Number: EU-ABBVIE-6366092

PATIENT
  Age: 45 Year
  Sex: Female

DRUGS (4)
  1. FOSCARBIDOPA\FOSLEVODOPA [Suspect]
     Active Substance: FOSCARBIDOPA\FOSLEVODOPA
     Indication: Parkinson^s disease
     Dosage: 240 MG + 12 MG ?FREQUENCY: LOAD0.6;HIGH0.36;BASE0.3;LOW0.24;EXTR0.3?LAST ADMIN DATE: 2025
     Route: 058
     Dates: start: 20250108
  2. FOSCARBIDOPA\FOSLEVODOPA [Suspect]
     Active Substance: FOSCARBIDOPA\FOSLEVODOPA
     Dosage: 240 MG + 12 MG?FIRST ADMIN DATE: 2025
     Route: 058
     Dates: end: 20250930
  3. FOSCARBIDOPA\FOSLEVODOPA [Suspect]
     Active Substance: FOSCARBIDOPA\FOSLEVODOPA
     Dosage: 240 MG + 12 MG,?FREQUENCY: LO0.6;HIGH0.33;BASE0.28;LOW0.25;EXTR0.3?FIRST ADMIN DATE: 2025?LAST AD...
     Route: 058
  4. SERTRALINE [Concomitant]
     Active Substance: SERTRALINE HYDROCHLORIDE
     Indication: Product used for unknown indication
     Dosage: 1 TABLET ?FORM STRENGTH: 50 MILLIGRAM?START DATE: BEFORE DUODOPA SUBCUTANEOUS

REACTIONS (4)
  - Headache [Not Recovered/Not Resolved]
  - On and off phenomenon [Not Recovered/Not Resolved]
  - Bradykinesia [Not Recovered/Not Resolved]
  - Dystonia [Not Recovered/Not Resolved]

NARRATIVE: CASE EVENT DATE: 20250101
